FAERS Safety Report 21876479 (Version 2)
Quarter: 2023Q1

REPORT INFORMATION
  Report Type: Spontaneous
  Country: IT (occurrence: IT)
  Receive Date: 20230118
  Receipt Date: 20230118
  Transmission Date: 20230418
  Serious: Yes (Death, Hospitalization)
  Sender: FDA-Public Use
  Company Number: IT-BAUSCH-BL-2023-000685

PATIENT
  Age: 64 Year
  Sex: Male

DRUGS (4)
  1. DEXAMETHASONE [Suspect]
     Active Substance: DEXAMETHASONE
     Indication: Brain oedema
     Dosage: 2-4MG/DAILY
     Route: 065
  2. TEMOZOLOMIDE [Concomitant]
     Active Substance: TEMOZOLOMIDE
     Indication: Glioblastoma
  3. TEMOZOLOMIDE [Concomitant]
     Active Substance: TEMOZOLOMIDE
     Dosage: 23 COURSES (ADJUVANT TMZ)
  4. REGORAFENIB [Concomitant]
     Active Substance: REGORAFENIB
     Indication: Glioblastoma
     Dosage: SECOND LINE CHEMOTHERAPY

REACTIONS (1)
  - Cerebral nocardiosis [Fatal]
